FAERS Safety Report 12856730 (Version 3)
Quarter: 2020Q3

REPORT INFORMATION
  Report Type: Report from Study
  Country: US (occurrence: US)
  Receive Date: 20161018
  Receipt Date: 20161202
  Transmission Date: 20201104
  Serious: Yes (Hospitalization, Other)
  Sender: FDA-Public Use
  Company Number: PHHO2016US015023

PATIENT
  Age: 28 Year
  Sex: Female
  Weight: 84.9 kg

DRUGS (100)
  1. VFEND [Concomitant]
     Active Substance: VORICONAZOLE
     Indication: PRODUCT USED FOR UNKNOWN INDICATION
     Dosage: 200 MG, Q12H
     Route: 048
     Dates: end: 20161010
  2. BUMEX [Concomitant]
     Active Substance: BUMETANIDE
     Indication: FLUID OVERLOAD
     Dosage: 2 MG, Q12H
     Route: 042
     Dates: start: 20161008, end: 20161008
  3. AZACTAM [Concomitant]
     Active Substance: AZTREONAM
     Indication: FEBRILE NEUTROPENIA
     Dosage: 2 G, Q8H
     Route: 042
     Dates: start: 20160922, end: 20160925
  4. LASIX [Concomitant]
     Active Substance: FUROSEMIDE
     Dosage: 40 MG, QD
     Route: 042
     Dates: start: 20160928, end: 20160930
  5. HYDROMORPHONE [Concomitant]
     Active Substance: HYDROMORPHONE
     Dosage: 0.5 MG,Q3H PRN
     Route: 042
  6. IBUPROFEN. [Concomitant]
     Active Substance: IBUPROFEN
     Indication: PYREXIA
     Dosage: 600 MG, UNK
     Route: 048
     Dates: start: 20161001, end: 20161001
  7. METHOTREXATE. [Concomitant]
     Active Substance: METHOTREXATE
     Dosage: 19 MG, ONCE/SINGLE
     Route: 042
     Dates: start: 20160920, end: 20160920
  8. FLUID/ELECTROLYTE REPLACEMENT THERAPY [Concomitant]
     Active Substance: UNSPECIFIED INGREDIENT
     Dosage: 75 ML/HOURS
     Route: 042
     Dates: start: 20160917, end: 20160917
  9. NEXAVAR [Concomitant]
     Active Substance: SORAFENIB
     Indication: PRODUCT USED FOR UNKNOWN INDICATION
     Dosage: 200 MG, BID
     Route: 048
  10. DUKES MOUTHWASH [Concomitant]
     Dosage: UNK
  11. ATIVAN [Concomitant]
     Active Substance: LORAZEPAM
     Dosage: 1 MG (TABLET), Q4H (PRN)
     Route: 048
     Dates: end: 20160930
  12. MEPHYTON [Concomitant]
     Active Substance: PHYTONADIONE
     Indication: PRODUCT USED FOR UNKNOWN INDICATION
     Dosage: 5 MG, QD
     Route: 048
     Dates: end: 20161010
  13. SODIUM CHLORIDE. [Concomitant]
     Active Substance: SODIUM CHLORIDE
     Dosage: 5 ML (SWISH AND SPIT), QID
     Route: 048
     Dates: end: 20161010
  14. VFEND [Concomitant]
     Active Substance: VORICONAZOLE
     Dosage: 200 MG, 2 TABLETS IN AM AND 1 TABLET AT NIGHT
     Route: 048
  15. LASIX [Concomitant]
     Active Substance: FUROSEMIDE
     Dosage: 40 MG, QD
     Route: 042
     Dates: start: 20161002, end: 20161002
  16. DAPTOMYCIN. [Concomitant]
     Active Substance: DAPTOMYCIN
     Indication: FEBRILE NEUTROPENIA
     Dosage: 400 MG, QD
     Route: 042
     Dates: start: 20160922
  17. ACETAMINOPHEN. [Concomitant]
     Active Substance: ACETAMINOPHEN
     Indication: TRANSFUSION
     Dosage: 650 MG, Q4H PRN
     Route: 048
     Dates: start: 20160914, end: 20161010
  18. CALCIUM GLUCONATE. [Concomitant]
     Active Substance: CALCIUM GLUCONATE
     Indication: HYPOCALCAEMIA
     Dosage: 1 G, PRN
     Route: 042
     Dates: start: 20160910, end: 20161009
  19. HYDROCORTISONE. [Concomitant]
     Active Substance: HYDROCORTISONE
     Dosage: 50 MG, ONCE/SINGLE
     Route: 042
     Dates: start: 20160927, end: 20160927
  20. HYDROMORPHONE [Concomitant]
     Active Substance: HYDROMORPHONE
     Indication: MUCOSAL INFLAMMATION
     Dosage: 0.3 MG, Q3H
     Route: 042
     Dates: start: 20160923, end: 20160924
  21. HYDROMORPHONE [Concomitant]
     Active Substance: HYDROMORPHONE
     Dosage: 0.37 MG, UNK
     Route: 042
     Dates: start: 20160924, end: 20160925
  22. HYDROMORPHONE [Concomitant]
     Active Substance: HYDROMORPHONE
     Dosage: 0.4 MG, UNK
     Route: 042
     Dates: start: 20160925, end: 20160929
  23. METHOTREXATE. [Concomitant]
     Active Substance: METHOTREXATE
     Dosage: 19 MG, ONCE/SINGLE
     Route: 042
     Dates: start: 20160917, end: 20160917
  24. RANITIDINE. [Concomitant]
     Active Substance: RANITIDINE
     Indication: DYSPEPSIA
     Dosage: 150 MG, ONCE/SINGLE
     Route: 048
     Dates: start: 20160925, end: 20160926
  25. VIBRAMYCIN [Concomitant]
     Active Substance: DOXYCYCLINE
     Indication: PRODUCT USED FOR UNKNOWN INDICATION
     Dosage: 100 MG, BID
     Route: 048
  26. PASIREOTIDE. [Suspect]
     Active Substance: PASIREOTIDE
     Indication: GASTROINTESTINAL TOXICITY
     Dosage: 0.9 MG, BID
     Route: 058
     Dates: start: 20160906, end: 20160918
  27. GAMUNEX?C [Concomitant]
     Active Substance: HUMAN IMMUNOGLOBULIN G
     Indication: PRODUCT USED FOR UNKNOWN INDICATION
     Dosage: 500 MG/KG, QTUE PRN
     Route: 042
  28. FALMINA [Concomitant]
     Active Substance: ETHINYL ESTRADIOL\LEVONORGESTREL
     Indication: PRODUCT USED FOR UNKNOWN INDICATION
     Dosage: 1 DF (0.1?20MG?MCG TABLET), QHS
     Route: 048
     Dates: end: 20161009
  29. PHENERGAN [Concomitant]
     Active Substance: PROMETHAZINE HYDROCHLORIDE
     Dosage: 25 MG (IN 50ML OF 0.9% NACL), Q8H (PRN)
     Route: 042
     Dates: start: 20160915, end: 20160926
  30. SENOKOT [Concomitant]
     Active Substance: SENNOSIDES
     Indication: PRODUCT USED FOR UNKNOWN INDICATION
     Dosage: 1 DF, BID (PRN)
     Route: 048
     Dates: end: 20161009
  31. VFEND [Concomitant]
     Active Substance: VORICONAZOLE
     Dosage: LEVEL 1 EACH, ONCE
     Route: 065
     Dates: start: 20161013
  32. BUSULFAN. [Concomitant]
     Active Substance: BUSULFAN
     Indication: PRODUCT USED FOR UNKNOWN INDICATION
     Dosage: 0.8 MG/KG (54 MG), 3 DOSES Q6H
     Route: 065
     Dates: start: 20160907, end: 20160907
  33. LASIX [Concomitant]
     Active Substance: FUROSEMIDE
     Dosage: 40 MG, ONCE/SINGLE
     Route: 042
     Dates: start: 20160926, end: 20160926
  34. LASIX [Concomitant]
     Active Substance: FUROSEMIDE
     Dosage: 40 MG, BID
     Route: 042
     Dates: start: 20161003, end: 20161003
  35. LASIX [Concomitant]
     Active Substance: FUROSEMIDE
     Dosage: 40 MG, QD
     Route: 042
     Dates: start: 20161004, end: 20161005
  36. FEXOFENADINE [Concomitant]
     Active Substance: FEXOFENADINE HYDROCHLORIDE
     Indication: CEREBRAL CONGESTION
     Dosage: 180 MG, QD
     Route: 048
     Dates: start: 20160909, end: 20161007
  37. FOSAPREPITANT [Concomitant]
     Active Substance: FOSAPREPITANT
     Indication: CHEMOTHERAPY
     Dosage: 180 MG, QD
     Route: 042
     Dates: start: 20160911, end: 20160911
  38. GUAIFENESIN. [Concomitant]
     Active Substance: GUAIFENESIN
     Indication: NASAL CONGESTION
     Dosage: 600 MG, BID
     Route: 048
     Dates: start: 20161005, end: 20161009
  39. HYDROMORPHONE [Concomitant]
     Active Substance: HYDROMORPHONE
     Dosage: 0.3 MG, UNK
     Route: 042
     Dates: start: 20161002, end: 20161006
  40. MIRALAX [Concomitant]
     Active Substance: POLYETHYLENE GLYCOL 3350
     Indication: PRODUCT USED FOR UNKNOWN INDICATION
     Dosage: ONCE DAILY AS NEEDED
     Route: 048
  41. OXYMETAZOLINE [Concomitant]
     Active Substance: OXYMETAZOLINE
     Indication: NASAL CONGESTION
     Dosage: 2 SPRAYS Q12H PRN
     Route: 045
     Dates: start: 20160928, end: 20160928
  42. POTASSIUM CHLORIDE. [Concomitant]
     Active Substance: POTASSIUM CHLORIDE
     Indication: HYPOKALAEMIA
     Dosage: 20 TO 40 ML, PRN
     Route: 042
     Dates: start: 20160910, end: 20161009
  43. CELLCEPT [Concomitant]
     Active Substance: MYCOPHENOLATE MOFETIL\MYCOPHENOLATE MOFETIL HYDROCHLORIDE
     Indication: PRODUCT USED FOR UNKNOWN INDICATION
     Dosage: 2 DF, Q8H (500 MG TABLET)
     Route: 048
  44. FOSCAVIR [Concomitant]
     Active Substance: FOSCARNET SODIUM
     Indication: HUMAN HERPESVIRUS 6 INFECTION
     Dosage: 60 MG/KG (4700MG), QD
     Route: 042
     Dates: start: 20161011
  45. NARCAN [Concomitant]
     Active Substance: NALOXONE HYDROCHLORIDE
     Indication: PRODUCT USED FOR UNKNOWN INDICATION
     Dosage: 0.4 MG, UNK
     Route: 042
  46. ZOFRAN [Concomitant]
     Active Substance: ONDANSETRON HYDROCHLORIDE
     Indication: PRODUCT USED FOR UNKNOWN INDICATION
     Dosage: 4 MG, Q8H (PRN)
     Route: 042
     Dates: end: 20161010
  47. TRANSDERM SCOP [Concomitant]
     Active Substance: SCOPOLAMINE
     Indication: PRODUCT USED FOR UNKNOWN INDICATION
     Dosage: 1 DF (PATCH) (1MG OVER 3 DAYS), Q72H
     Route: 062
     Dates: start: 20160914, end: 20161002
  48. MICAFUNGIN. [Concomitant]
     Active Substance: MICAFUNGIN SODIUM
     Indication: FUNGAL INFECTION
     Dosage: 100 MG, QD
     Route: 065
     Dates: start: 20160927, end: 20161003
  49. HYDROCORTISONE. [Concomitant]
     Active Substance: HYDROCORTISONE
     Indication: HYPERSENSITIVITY
     Dosage: 50 MG, ONCE/SINGLE
     Route: 042
     Dates: start: 20160914, end: 20160914
  50. HYDROCORTISONE. [Concomitant]
     Active Substance: HYDROCORTISONE
     Dosage: 50 MG, ONCE/SINGLE
     Route: 042
     Dates: start: 20161005, end: 20161005
  51. MELATONIN [Concomitant]
     Active Substance: MELATONIN
     Dosage: 1 DF (3 MG TOTAL) PRN
     Route: 048
  52. METHOTREXATE. [Concomitant]
     Active Substance: METHOTREXATE
     Indication: PROPHYLAXIS AGAINST GRAFT VERSUS HOST DISEASE
     Dosage: 28 MG, ONCE/SINGLE
     Route: 042
     Dates: start: 20160915, end: 20160915
  53. LEVAQUIN [Concomitant]
     Active Substance: LEVOFLOXACIN
     Indication: PRODUCT USED FOR UNKNOWN INDICATION
     Dosage: 500 MG, QD FOR 10 DAYS
     Route: 048
  54. CIPRO [Concomitant]
     Active Substance: CIPROFLOXACIN HYDROCHLORIDE
     Indication: PRODUCT USED FOR UNKNOWN INDICATION
     Dosage: 500 MG, BID
     Route: 048
  55. ZOVIRAX [Concomitant]
     Active Substance: ACYCLOVIR
     Indication: PRODUCT USED FOR UNKNOWN INDICATION
     Dosage: 2 DF, BID
     Route: 048
  56. PEPCID [Concomitant]
     Active Substance: FAMOTIDINE
     Indication: PRODUCT USED FOR UNKNOWN INDICATION
     Dosage: 20 MG, BID
     Route: 048
  57. MAG?OX [Concomitant]
     Active Substance: MAGNESIUM OXIDE
     Indication: PRODUCT USED FOR UNKNOWN INDICATION
     Dosage: 400 MG, QD
     Route: 048
  58. NEBUPENT [Concomitant]
     Active Substance: PENTAMIDINE ISETHIONATE
     Indication: PRODUCT USED FOR UNKNOWN INDICATION
     Dosage: EVERY 28 DAYS
     Route: 055
  59. IMODIUM [Concomitant]
     Active Substance: LOPERAMIDE HYDROCHLORIDE
     Indication: PRODUCT USED FOR UNKNOWN INDICATION
     Dosage: 2 MG, QID (PRN)
     Route: 048
  60. BUMEX [Concomitant]
     Active Substance: BUMETANIDE
     Dosage: 2 MG, Q12H
     Route: 042
     Dates: start: 20161009, end: 20161009
  61. ACYCLOVIR. [Concomitant]
     Active Substance: ACYCLOVIR
     Dosage: 2 DF, UNK
     Route: 048
  62. LOPERAMIDE [Concomitant]
     Active Substance: LOPERAMIDE
     Indication: DIARRHOEA
     Dosage: 2 MG, QID
     Route: 065
     Dates: start: 20160912, end: 20160924
  63. DILAUDID [Concomitant]
     Active Substance: HYDROMORPHONE HYDROCHLORIDE
     Indication: PRODUCT USED FOR UNKNOWN INDICATION
     Dosage: 0.5 MG, Q3H
     Route: 042
  64. ZYPREXA [Concomitant]
     Active Substance: OLANZAPINE
     Indication: NAUSEA
     Dosage: 2.5 MG, QHS
     Route: 065
     Dates: start: 20160911, end: 20160912
  65. SODIUM CHLORIDE. [Concomitant]
     Active Substance: SODIUM CHLORIDE
     Dosage: 250 ML (0.9% BOLUS), QD
     Route: 042
     Dates: start: 20161011
  66. ACTIGALL [Concomitant]
     Active Substance: URSODIOL
     Indication: PRODUCT USED FOR UNKNOWN INDICATION
     Dosage: 300 MG, BID
     Route: 048
     Dates: end: 20161010
  67. GRANIX [Concomitant]
     Active Substance: TBO-FILGRASTIM
     Indication: WHITE BLOOD CELL DISORDER
     Dosage: UNK
     Route: 065
     Dates: start: 20160930
  68. FLUID/ELECTROLYTE REPLACEMENT THERAPY [Concomitant]
     Active Substance: UNSPECIFIED INGREDIENT
     Dosage: 75 ML/HOURS
     Route: 042
     Dates: start: 20160915, end: 20160915
  69. BENADRYL [Concomitant]
     Active Substance: DIPHENHYDRAMINE HYDROCHLORIDE
     Indication: TRANSFUSION
     Dosage: 25 MG, Q18H
     Route: 042
     Dates: start: 20160918, end: 20161010
  70. ZYPREXA [Concomitant]
     Active Substance: OLANZAPINE
     Dosage: 5 MG, QHS
     Route: 065
     Dates: start: 20160913, end: 20161009
  71. ROXICODONE [Concomitant]
     Active Substance: OXYCODONE HYDROCHLORIDE
     Indication: PRODUCT USED FOR UNKNOWN INDICATION
     Dosage: 5 MG (IMMEDIATE RELEASE TABLET), Q8H (PRN)
     Route: 048
     Dates: end: 20161009
  72. PHENERGAN [Concomitant]
     Active Substance: PROMETHAZINE HYDROCHLORIDE
     Indication: PRODUCT USED FOR UNKNOWN INDICATION
     Dosage: 12.5 MG, Q8H
     Route: 042
     Dates: start: 20160911
  73. FLAGYL [Concomitant]
     Active Substance: METRONIDAZOLE\METRONIDAZOLE HYDROCHLORIDE
     Indication: FEBRILE NEUTROPENIA
     Dosage: 500 MG, Q5H
     Route: 042
     Dates: start: 20160929, end: 20161009
  74. LASIX [Concomitant]
     Active Substance: FUROSEMIDE
     Indication: FLUID OVERLOAD
     Dosage: 20 MG, ONCE/SINGLE
     Route: 042
     Dates: start: 20160924, end: 20160924
  75. LASIX [Concomitant]
     Active Substance: FUROSEMIDE
     Dosage: 60 MG, ONCE/SINGLE
     Route: 042
     Dates: start: 20161006, end: 20161006
  76. MEROPENEM. [Concomitant]
     Active Substance: MEROPENEM
     Indication: FEBRILE NEUTROPENIA
     Dosage: 500 MG, Q6H
     Route: 042
     Dates: start: 20160925, end: 20160926
  77. MELATONIN [Concomitant]
     Active Substance: MELATONIN
     Indication: INSOMNIA
     Dosage: 2?4 MG, PRN
     Route: 042
     Dates: start: 20161008, end: 20161008
  78. PANTOPRAZOLE [Concomitant]
     Active Substance: PANTOPRAZOLE
     Indication: GASTROOESOPHAGEAL REFLUX DISEASE
     Dosage: 40 MG, QD
     Route: 048
     Dates: start: 20160927, end: 20161009
  79. FLUID/ELECTROLYTE REPLACEMENT THERAPY [Concomitant]
     Active Substance: UNSPECIFIED INGREDIENT
     Dosage: 75 ML/HOURS
     Route: 042
     Dates: start: 20160920, end: 20160920
  80. SODIUM FLUORIDE. [Concomitant]
     Active Substance: SODIUM FLUORIDE
     Indication: PRODUCT USED FOR UNKNOWN INDICATION
     Dosage: 1.1 % GEL
     Route: 048
  81. TRIAMCINOLON [Concomitant]
     Indication: PRODUCT USED FOR UNKNOWN INDICATION
     Dosage: 0.1% CRAEM TWICE DAILY
     Route: 065
  82. BENADRYL [Concomitant]
     Active Substance: DIPHENHYDRAMINE HYDROCHLORIDE
     Dosage: UNK
  83. DUKES MOUTHWASH [Concomitant]
     Indication: STOMATITIS
     Dosage: 5 ML, Q6H
     Route: 048
     Dates: start: 20160920, end: 20161010
  84. FOSCAVIR [Concomitant]
     Active Substance: FOSCARNET SODIUM
     Dosage: UNK
  85. ATIVAN [Concomitant]
     Active Substance: LORAZEPAM
     Dosage: 1 MG (2MG/ML INJECTION), Q4H (PRN)
     Route: 042
     Dates: end: 20161009
  86. SODIUM CHLORIDE. [Concomitant]
     Active Substance: SODIUM CHLORIDE
     Indication: PRODUCT USED FOR UNKNOWN INDICATION
     Dosage: 10 ML/HR (0.9% INFUSION)
     Route: 042
     Dates: end: 20161009
  87. CYTOXAN [Concomitant]
     Active Substance: CYCLOPHOSPHAMIDE
     Indication: PRODUCT USED FOR UNKNOWN INDICATION
     Dosage: 4210 MG, QD
     Route: 065
     Dates: start: 20160911, end: 20160912
  88. BUSULFAN. [Concomitant]
     Active Substance: BUSULFAN
     Dosage: 66 MG, Q6H
     Route: 065
     Dates: start: 20160907, end: 20160910
  89. GRANIX [Concomitant]
     Active Substance: TBO-FILGRASTIM
     Dosage: BID
     Route: 065
     Dates: start: 20161002
  90. AZACTAM [Concomitant]
     Active Substance: AZTREONAM
     Dosage: UNK
     Route: 065
     Dates: start: 20160927, end: 20161009
  91. ACYCLOVIR. [Concomitant]
     Active Substance: ACYCLOVIR
     Indication: ANTIVIRAL PROPHYLAXIS
     Dosage: 400 MG, BID
     Route: 048
     Dates: start: 20160916, end: 20161009
  92. HYDROCORTISONE. [Concomitant]
     Active Substance: HYDROCORTISONE
     Dosage: 50 MG, ONCE/SINGLE
     Route: 042
     Dates: start: 20161002, end: 20161002
  93. METHOTREXATE. [Concomitant]
     Active Substance: METHOTREXATE
     Dosage: 19 MG, ONCE/SINGLE
     Route: 042
     Dates: start: 20160925, end: 20160925
  94. POLYETHYLENE GLYCOL [Concomitant]
     Active Substance: POLYETHYLENE GLYCOLS
     Indication: CONSTIPATION
     Dosage: 17 G, QD
     Route: 048
     Dates: start: 20160925, end: 20160925
  95. FEXOFENADINE [Concomitant]
     Active Substance: FEXOFENADINE HYDROCHLORIDE
     Indication: PRODUCT USED FOR UNKNOWN INDICATION
     Dosage: 180 MG, QD
     Route: 048
     Dates: start: 20160909, end: 20161007
  96. FLUID/ELECTROLYTE REPLACEMENT THERAPY [Concomitant]
     Active Substance: UNSPECIFIED INGREDIENT
     Indication: DEHYDRATION
     Dosage: 250 ML/HOURS
     Route: 042
     Dates: start: 20160911, end: 20160912
  97. RANITIDINE. [Concomitant]
     Active Substance: RANITIDINE
     Dosage: UNK
  98. TYLENOL [Concomitant]
     Active Substance: ACETAMINOPHEN
     Indication: PRODUCT USED FOR UNKNOWN INDICATION
     Dosage: 650 MG, Q4H (PRN)
     Route: 048
     Dates: end: 20161005
  99. ATIVAN [Concomitant]
     Active Substance: LORAZEPAM
     Indication: NAUSEA
     Dosage: 0.5 MG, TID AC
     Route: 048
     Dates: start: 20160914, end: 20161004
  100. PROGRAF [Concomitant]
     Active Substance: TACROLIMUS
     Indication: PRODUCT USED FOR UNKNOWN INDICATION
     Dosage: 0.02 MG/HR (2.5 MG IN 0.9% NACL), CONTINUOUS
     Route: 042
     Dates: end: 20151009

REACTIONS (1)
  - Hepatobiliary disease [Recovered/Resolved]

NARRATIVE: CASE EVENT DATE: 20161009
